FAERS Safety Report 24294056 (Version 1)
Quarter: 2024Q3

REPORT INFORMATION
  Report Type: Spontaneous
  Country: US (occurrence: None)
  Receive Date: 20240906
  Receipt Date: 20240906
  Transmission Date: 20241016
  Serious: No
  Sender: DOMPE FARMACEUTICI
  Company Number: US-FARMAPROD-202308-202404-1227

PATIENT
  Age: 75 Year
  Sex: Female

DRUGS (4)
  1. OXERVATE [Suspect]
     Active Substance: CENEGERMIN-BKBJ
     Indication: Neurotrophic keratopathy
     Route: 047
     Dates: start: 20240327
  2. OXERVATE [Suspect]
     Active Substance: CENEGERMIN-BKBJ
  3. RESTASIS [Concomitant]
     Active Substance: CYCLOSPORINE
     Dosage: DROPERETTE
  4. AMINO ACIDS [Concomitant]
     Active Substance: AMINO ACIDS

REACTIONS (6)
  - Eye pain [Unknown]
  - Wrong technique in product usage process [Unknown]
  - Product dose omission issue [Not Recovered/Not Resolved]
  - Influenza [Unknown]
  - Cough [Unknown]
  - Inappropriate schedule of product administration [Unknown]

NARRATIVE: CASE EVENT DATE: 20240327
